FAERS Safety Report 9916261 (Version 2)
Quarter: 2014Q1

REPORT INFORMATION
  Report Type: Report from Study
  Country: JP (occurrence: JP)
  Receive Date: 20140221
  Receipt Date: 20140221
  Transmission Date: 20141002
  Serious: Yes (Death, Life-Threatening, Other)
  Sender: FDA-Public Use
  Company Number: JP-SA-THYM-1002701

PATIENT
  Age: 29 Year
  Sex: Female
  Weight: 36 kg

DRUGS (5)
  1. THYMOGLOBULINE [Suspect]
     Indication: BONE MARROW CONDITIONING REGIMEN
     Dosage: 40 MG, QD
     Route: 042
     Dates: start: 20100306, end: 20100307
  2. AMLODIN [Concomitant]
     Dates: start: 20100408, end: 20100410
  3. HERBESSER [Concomitant]
     Dates: end: 20100413
  4. FOSCAVIR [Concomitant]
     Indication: ACUTE LYMPHOCYTIC LEUKAEMIA
     Dosage: 24 MG/ML
     Route: 042
     Dates: start: 20100406, end: 20100410
  5. AMBISOME [Concomitant]
     Indication: ACUTE LYMPHOCYTIC LEUKAEMIA
     Route: 042
     Dates: start: 20100407, end: 20100413

REACTIONS (4)
  - Brain abscess [Not Recovered/Not Resolved]
  - Subarachnoid haemorrhage [Fatal]
  - Encephalomyelitis [Fatal]
  - Sinusitis [Not Recovered/Not Resolved]
